FAERS Safety Report 4525778-8 (Version None)
Quarter: 2004Q4

REPORT INFORMATION
  Report Type: 
  Country: None (occurrence: None)
  Receive Date: 20041213
  Receipt Date: 20041203
  Transmission Date: 20050328
  Serious: Yes (Hospitalization)
  Sender: FDA-Public Use
  Company Number: US-ABBOTT-04P-163-0282288-00

PATIENT
  Sex: Female
  Weight: 121 kg

DRUGS (17)
  1. HUMIRA [Suspect]
     Indication: RHEUMATOID ARTHRITIS
     Route: 058
     Dates: start: 20030101, end: 20040901
  2. HUMIRA [Suspect]
     Route: 058
     Dates: start: 20041001, end: 20041101
  3. METHOTREXATE SODIUM [Concomitant]
     Indication: RHEUMATOID ARTHRITIS
     Route: 048
  4. TOPIRMATE [Concomitant]
     Indication: DEPRESSION
     Route: 048
     Dates: start: 20041201
  5. CYMBALTA [Concomitant]
     Indication: DEPRESSION
     Route: 048
     Dates: start: 20041201
  6. DYAZIDE [Concomitant]
     Indication: FLUID RETENTION
     Route: 048
  7. MINOCYCLINE HCL [Concomitant]
     Indication: RHEUMATOID ARTHRITIS
     Route: 048
  8. ATENOLOL [Concomitant]
     Indication: BLOOD PRESSURE INCREASED
     Route: 048
  9. PROCHLORPERAZINE EDISYLATE [Concomitant]
     Indication: NAUSEA
     Route: 048
  10. PREDNISONE [Concomitant]
     Indication: RHEUMATOID ARTHRITIS
     Route: 048
  11. FOLIC ACID [Concomitant]
     Indication: RHEUMATOID ARTHRITIS
     Route: 048
  12. ALENDRONATE SODIUM [Concomitant]
     Indication: RHEUMATOID ARTHRITIS
     Route: 048
  13. CETIRIZINE HCL [Concomitant]
     Indication: URTICARIA
     Route: 048
  14. LEVOTHYROXINE SODIUM [Concomitant]
     Indication: HYPOTHYROIDISM
     Route: 048
  15. OXYCONTIN [Concomitant]
     Indication: PAIN
     Route: 048
  16. PILOCARPINE HYDROCHLORIDE [Concomitant]
     Indication: DRY MOUTH
     Route: 048
  17. CELECOXIB [Concomitant]
     Indication: RHEUMATOID ARTHRITIS
     Route: 048

REACTIONS (2)
  - INJECTION SITE HAEMORRHAGE [None]
  - INTERVERTEBRAL DISC PROTRUSION [None]
